FAERS Safety Report 10099592 (Version 2)
Quarter: 2014Q2

REPORT INFORMATION
  Report Type: Report from Study
  Country: US (occurrence: US)
  Receive Date: 20140423
  Receipt Date: 20140514
  Transmission Date: 20141212
  Serious: Yes (Hospitalization)
  Sender: FDA-Public Use
  Company Number: US-JNJFOC-20140412894

PATIENT
  Age: 71 Year
  Sex: Female
  Weight: 73.48 kg

DRUGS (4)
  1. REMICADE [Suspect]
     Indication: ARTHRITIS REACTIVE
     Route: 042
     Dates: start: 2011, end: 20131210
  2. SIMVASTATIN [Concomitant]
     Indication: BLOOD CHOLESTEROL
     Route: 048
  3. NORVASC [Concomitant]
     Indication: BLOOD PRESSURE
     Route: 048
  4. PRILOSEC [Concomitant]
     Indication: GASTRIC DISORDER
     Route: 048

REACTIONS (3)
  - Neuropathy peripheral [Not Recovered/Not Resolved]
  - Bladder prolapse [Unknown]
  - Sleep disorder [Not Recovered/Not Resolved]
